FAERS Safety Report 9979767 (Version 1)
Quarter: 2014Q1

REPORT INFORMATION
  Report Type: Report from Study
  Country: US (occurrence: US)
  Receive Date: 20140306
  Receipt Date: 20140306
  Transmission Date: 20141002
  Serious: No
  Sender: FDA-Public Use
  Company Number: US-ABBVIE-13P-163-1170434-00

PATIENT
  Age: 44 Year
  Sex: Female
  Weight: 68.1 kg

DRUGS (6)
  1. HUMIRA [Suspect]
     Indication: CROHN^S DISEASE
     Dates: start: 201308, end: 201309
  2. ATENOLOL [Concomitant]
     Indication: HYPERTHYROIDISM
  3. CAPIZOL [Concomitant]
     Indication: HYPERTHYROIDISM
  4. CELEXA [Concomitant]
     Indication: HYPERTHYROIDISM
  5. PERCOCET [Concomitant]
     Indication: PAIN
  6. BUTRAN PATCH [Concomitant]
     Indication: PAIN

REACTIONS (2)
  - Nasal congestion [Recovered/Resolved]
  - Cough [Not Recovered/Not Resolved]
